FAERS Safety Report 23724348 (Version 1)
Quarter: 2024Q2

REPORT INFORMATION
  Report Type: Spontaneous
  Country: US (occurrence: US)
  Receive Date: 20240409
  Receipt Date: 20240409
  Transmission Date: 20240716
  Serious: Yes (Life-Threatening, Other)
  Sender: FDA-Public Use
  Company Number: US-LUNDBECK-DKLU3076377

PATIENT
  Age: 46 Year
  Sex: Female

DRUGS (1)
  1. VYEPTI [Suspect]
     Active Substance: EPTINEZUMAB-JJMR
     Indication: Migraine
     Route: 041
     Dates: start: 20231226

REACTIONS (3)
  - Gastric volvulus [Recovering/Resolving]
  - Gastric ulcer [Recovering/Resolving]
  - Hiatus hernia [Recovering/Resolving]
